FAERS Safety Report 6315646-3 (Version None)
Quarter: 2009Q3

REPORT INFORMATION
  Report Type: 
  Country: None (occurrence: None)
  Receive Date: 20090818
  Receipt Date: 20090727
  Transmission Date: 20100115
  Serious: Yes (Hospitalization)
  Sender: FDA-Public Use
  Company Number: ADR11372009

PATIENT
  Age: 60 Year
  Sex: Female

DRUGS (2)
  1. ALENDRONIC ACID (MFR: UNKNOWN) [Suspect]
     Indication: OSTEOPOROSIS
     Dosage: ORAL
     Route: 048
  2. PREDNISOLONE [Concomitant]

REACTIONS (4)
  - FEMUR FRACTURE [None]
  - OSTEOPOROSIS [None]
  - PAIN IN EXTREMITY [None]
  - PATHOLOGICAL FRACTURE [None]
